FAERS Safety Report 18141545 (Version 2)
Quarter: 2020Q4

REPORT INFORMATION
  Report Type: Spontaneous
  Country: US (occurrence: US)
  Receive Date: 20200812
  Receipt Date: 20201015
  Transmission Date: 20210113
  Serious: No
  Sender: FDA-Public Use
  Company Number: US-BIOGEN-2020BI00910128

PATIENT
  Age: 35 Year
  Sex: Female

DRUGS (1)
  1. TYSABRI [Suspect]
     Active Substance: NATALIZUMAB
     Indication: MULTIPLE SCLEROSIS
     Route: 065
     Dates: start: 20200629

REACTIONS (4)
  - Hemiparaesthesia [Unknown]
  - Fatigue [Unknown]
  - Tunnel vision [Unknown]
  - Chest pain [Unknown]

NARRATIVE: CASE EVENT DATE: 20200629
